FAERS Safety Report 7037641-1 (Version None)
Quarter: 2010Q4

REPORT INFORMATION
  Report Type: 
  Country: None (occurrence: None)
  Receive Date: 20101011
  Receipt Date: 20101001
  Transmission Date: 20110411
  Serious: Yes (Other)
  Sender: FDA-Public Use
  Company Number: FR-ABBOTT-10P-056-0668667-00

PATIENT
  Age: 83 Year
  Sex: Female

DRUGS (1)
  1. VERCYTE [Suspect]
     Indication: ESSENTIAL THROMBOCYTHAEMIA

REACTIONS (1)
  - HYPERKERATOSIS [None]
